FAERS Safety Report 9569459 (Version 2)
Quarter: 2013Q3

REPORT INFORMATION
  Report Type: Spontaneous
  Country: US (occurrence: US)
  Receive Date: 20130930
  Receipt Date: 20130930
  Transmission Date: 20140515
  Serious: No
  Sender: FDA-Public Use
  Company Number: US-AMGEN-USASP2013066530

PATIENT
  Age: 47 Year
  Sex: Female
  Weight: 79.27 kg

DRUGS (4)
  1. ENBREL [Suspect]
     Indication: RHEUMATOID ARTHRITIS
     Dosage: 50 MG, QWK
     Route: 058
     Dates: start: 20120921, end: 20130115
  2. AZULFIDINE [Concomitant]
     Dosage: 500 MG, BID
     Route: 048
  3. EFFEXOR [Concomitant]
     Dosage: 75 MG, BID
     Route: 048
  4. LYRICA [Concomitant]
     Dosage: 75 MG, BID
     Route: 048

REACTIONS (8)
  - Oedema peripheral [Recovered/Resolved]
  - Joint swelling [Recovered/Resolved]
  - Swelling face [Not Recovered/Not Resolved]
  - Hypoaesthesia oral [Recovered/Resolved]
  - Back pain [Recovered/Resolved]
  - Hypoaesthesia [Recovered/Resolved]
  - Drug ineffective [Unknown]
  - Paraesthesia [Not Recovered/Not Resolved]
